FAERS Safety Report 14210637 (Version 1)
Quarter: 2017Q4

REPORT INFORMATION
  Report Type: Report from Study
  Country: DE (occurrence: DE)
  Receive Date: 20171121
  Receipt Date: 20171121
  Transmission Date: 20180321
  Serious: Yes (Hospitalization, Other)
  Sender: FDA-Public Use
  Company Number: DE-ROCHE-2028005

PATIENT
  Age: 60 Year
  Sex: Female
  Weight: 69 kg

DRUGS (3)
  1. OXALIPLATIN. [Concomitant]
     Active Substance: OXALIPLATIN
     Indication: COLON CANCER METASTATIC
     Dosage: DAYS 1 AND 8 OF A CYCLE, START 1ST CYCLE: 15 SEP 2010, 2ND CYCLE: 1 OCT 2010, 3RD CYCLE: 27 OCT 2010
     Route: 065
  2. BEVACIZUMAB. [Suspect]
     Active Substance: BEVACIZUMAB
     Indication: COLON CANCER METASTATIC
     Dosage: DAY 1 OF A CYCLE, START 1ST CYCLE 1 OCT 2010, START 2ND CYCLE 27 OCT 2010.?SUBSEQUENT DOSE ON 06/OCT
     Route: 042
     Dates: start: 20101001, end: 20101027
  3. XELODA [Suspect]
     Active Substance: CAPECITABINE
     Indication: COLON CANCER METASTATIC
     Dosage: DAYS 11-14 OF A CYCLE, START 1ST CYCLE: 15 SEP 2010, 2ND CYCLE: 1 OCT 2010, 3RD CYCLE: 27 OCT 2010
     Route: 065

REACTIONS (2)
  - Venous thrombosis limb [Unknown]
  - Arterial thrombosis [Unknown]

NARRATIVE: CASE EVENT DATE: 20101112
